FAERS Safety Report 7686600-4 (Version None)
Quarter: 2011Q3

REPORT INFORMATION
  Report Type: 
  Country: None (occurrence: None)
  Receive Date: 20110816
  Receipt Date: 20110808
  Transmission Date: 20111222
  Serious: Yes (Life-Threatening, Hospitalization, Other)
  Sender: FDA-Public Use
  Company Number: US-ACTELION-A-NJ2011-49648

PATIENT

DRUGS (3)
  1. TRACLEER [Suspect]
     Indication: PULMONARY ARTERIAL HYPERTENSION
     Dosage: UNK
     Route: 048
     Dates: start: 20060501
  2. OXYGEN [Concomitant]
  3. REVATIO [Concomitant]

REACTIONS (6)
  - HEADACHE [None]
  - TRANSFUSION [None]
  - VOMITING [None]
  - HAEMORRHAGE [None]
  - DISCOMFORT [None]
  - NAUSEA [None]
